FAERS Safety Report 6529646-1 (Version None)
Quarter: 2010Q1

REPORT INFORMATION
  Report Type: 
  Country: None (occurrence: None)
  Receive Date: 20100107
  Receipt Date: 20091228
  Transmission Date: 20100710
  Serious: Yes (Hospitalization)
  Sender: FDA-Public Use
  Company Number: FR-WYE-H12831910

PATIENT
  Age: 86 Year
  Sex: Female

DRUGS (7)
  1. CORDARONE [Interacting]
     Indication: ARRHYTHMIA
     Route: 048
     Dates: end: 20090813
  2. DIGOXIN [Interacting]
     Indication: CARDIAC FAILURE
     Route: 048
     Dates: end: 20090813
  3. NITRODERM [Concomitant]
  4. BROMAZEPAM [Concomitant]
     Dosage: UNSPECIFIED
     Route: 065
  5. APROVEL [Concomitant]
     Dosage: UNSPECIFIED
     Route: 065
  6. LASILIX [Suspect]
     Indication: HYPERTENSION
     Route: 048
  7. DIFFU K [Concomitant]
     Dosage: UNSPECIFIED
     Route: 065
     Dates: end: 20090813

REACTIONS (4)
  - BRADYCARDIA [None]
  - DRUG INTERACTION [None]
  - HYPOKALAEMIA [None]
  - THERAPEUTIC AGENT TOXICITY [None]
